FAERS Safety Report 7356633-6 (Version None)
Quarter: 2011Q1

REPORT INFORMATION
  Report Type: 
  Country: None (occurrence: None)
  Receive Date: 20110316
  Receipt Date: 20110304
  Transmission Date: 20110831
  Serious: Yes (Disabling)
  Sender: FDA-Public Use
  Company Number: PHHY2011IT18355

PATIENT
  Sex: Male

DRUGS (1)
  1. EXJADE [Suspect]
     Indication: THALASSAEMIA BETA
     Dosage: 20 MG/KG, UNK
     Route: 048
     Dates: start: 20090502, end: 20101109

REACTIONS (1)
  - NEUROSENSORY HYPOACUSIS [None]
